FAERS Safety Report 11065311 (Version 2)
Quarter: 2015Q2

REPORT INFORMATION
  Report Type: Spontaneous
  Country: US (occurrence: US)
  Receive Date: 20150425
  Receipt Date: 20150525
  Transmission Date: 20150821
  Serious: Yes (Other)
  Sender: FDA-Public Use
  Company Number: US-JNJFOC-20140716359

PATIENT
  Sex: Female
  Weight: 115.21 kg

DRUGS (5)
  1. PREDNISOLONE. [Concomitant]
     Active Substance: PREDNISOLONE
     Route: 065
  2. VICODIN [Concomitant]
     Active Substance: ACETAMINOPHEN\HYDROCODONE BITARTRATE
     Route: 065
  3. NATAZIA [Concomitant]
     Active Substance: DIENOGEST\ESTRADIOL VALERATE
     Indication: UTERINE LEIOMYOMA
     Route: 048
     Dates: start: 2013
  4. CELEBREX [Concomitant]
     Active Substance: CELECOXIB
     Route: 065
  5. STELARA [Suspect]
     Active Substance: USTEKINUMAB
     Indication: PSORIATIC ARTHROPATHY
     Dosage: HAD 2 DOSES
     Route: 058
     Dates: start: 20140613

REACTIONS (3)
  - Tendonitis [Not Recovered/Not Resolved]
  - Psoriatic arthropathy [Not Recovered/Not Resolved]
  - Abnormal loss of weight [Not Recovered/Not Resolved]

NARRATIVE: CASE EVENT DATE: 2014
